APPROVED DRUG PRODUCT: EPHEDRINE SULFATE
Active Ingredient: EPHEDRINE SULFATE
Strength: 25MG/5ML (5MG/ML)
Dosage Form/Route: SOLUTION;INTRAVENOUS
Application: A218271 | Product #001 | TE Code: AP2
Applicant: FRESENIUS KABI USA LLC
Approved: Mar 11, 2025 | RLD: No | RS: No | Type: RX

EXCLUSIVITY:
Code: PC | Date: Feb 21, 2026